FAERS Safety Report 24242401 (Version 1)
Quarter: 2024Q3

REPORT INFORMATION
  Report Type: Other
  Country: CA (occurrence: CA)
  Receive Date: 20240823
  Receipt Date: 20240823
  Transmission Date: 20241016
  Serious: Yes (Other)
  Sender: ARGENX BVBA
  Company Number: CA-ARGENX-2024-ARGX-CA006863

PATIENT

DRUGS (2)
  1. VYVGART [Suspect]
     Active Substance: EFGARTIGIMOD ALFA-FCAB
     Indication: Myasthenia gravis
     Dosage: 657 MG SINGLE USE VIAL, SOLUTION INTRAVENOUS
     Route: 042
  2. CORTICOSTEROID NOS [Concomitant]
     Active Substance: CORTICOSTEROID NOS
     Indication: Product used for unknown indication
     Dosage: UNK
     Route: 065

REACTIONS (6)
  - Myasthenia gravis [Unknown]
  - Arthralgia [Unknown]
  - Back pain [Unknown]
  - Fall [Unknown]
  - Poor venous access [Unknown]
  - Fatigue [Unknown]
